FAERS Safety Report 9720030 (Version 1)
Quarter: 2013Q4

REPORT INFORMATION
  Report Type: Spontaneous
  Country: CH (occurrence: CH)
  Receive Date: 20131128
  Receipt Date: 20131128
  Transmission Date: 20140711
  Serious: Yes (Hospitalization)
  Sender: FDA-Public Use
  Company Number: CH-009507513-1311CHE008698

PATIENT
  Age: 58 Year
  Sex: Male
  Weight: 70 kg

DRUGS (11)
  1. INVANZ [Suspect]
     Indication: PNEUMONIA
     Dosage: 1 G, QD, FORMULATION: VIAL
     Route: 041
     Dates: start: 20120815, end: 20120824
  2. METOPROLOL [Concomitant]
     Dosage: 200 MG, QD
     Route: 048
  3. LISINOPRIL [Concomitant]
     Dosage: 20 MG, QD
     Route: 048
     Dates: end: 20120830
  4. AMLODIPINE [Concomitant]
     Dosage: 10 MG, QD
     Route: 048
     Dates: end: 20120830
  5. OXCARBAZEPINE [Concomitant]
     Dosage: 600 MG, BID
     Route: 048
     Dates: end: 20120830
  6. ATORVASTATIN [Concomitant]
     Dosage: 80 MG, QD
     Route: 048
     Dates: end: 20120830
  7. DALTEPARIN SODIUM [Concomitant]
     Dosage: 5000 IU, QD
     Route: 058
  8. ESOMEPRAZOLE MAGNESIUM [Concomitant]
     Dosage: 20 MG, QD
     Route: 048
     Dates: start: 20120825, end: 20120828
  9. LEVOCETIRIZINE [Concomitant]
     Dosage: 5 MG, QD
     Route: 048
     Dates: start: 20120826, end: 20120828
  10. CLOBAZAM [Concomitant]
     Dosage: 15 MG, QD
     Route: 048
     Dates: start: 20120829
  11. RANITIDINE [Concomitant]
     Dosage: 150 MG, QD
     Route: 048
     Dates: start: 20120829

REACTIONS (3)
  - Drug eruption [Recovered/Resolved]
  - Eosinophil count increased [Unknown]
  - Pyrexia [Recovered/Resolved]
